FAERS Safety Report 8720156 (Version 2)
Quarter: 2012Q4

REPORT INFORMATION
  Report Type: 
  Country: US (occurrence: US)
  Receive Date: 20120813
  Receipt Date: 20120917
  Transmission Date: 20130627
  Serious: Yes (Other)
  Sender: FDA-Public Use
  Company Number: US-ASTRAZENECA-2012SE55324

PATIENT
  Age: 76 Year
  Sex: Female

DRUGS (1)
  1. NEXIUM [Suspect]
     Route: 048

REACTIONS (12)
  - Cataract [Unknown]
  - Deafness unilateral [Unknown]
  - Visual acuity reduced [Unknown]
  - Arthritis [Unknown]
  - Oesophageal disorder [Unknown]
  - Gastrooesophageal reflux disease [Unknown]
  - Hypertension [Unknown]
  - Spinal column stenosis [Unknown]
  - Gastric disorder [Unknown]
  - Arthralgia [Unknown]
  - Malaise [Unknown]
  - Diarrhoea [Unknown]
